FAERS Safety Report 7292675-7 (Version None)
Quarter: 2011Q1

REPORT INFORMATION
  Report Type: 
  Country: None (occurrence: None)
  Receive Date: 20110215
  Receipt Date: 20110204
  Transmission Date: 20110831
  Serious: Yes (Other)
  Sender: FDA-Public Use
  Company Number: DE-JNJFOC-20110202026

PATIENT
  Sex: Female

DRUGS (2)
  1. VICTOZA [Suspect]
     Indication: DIABETES MELLITUS
     Route: 065
  2. REMICADE [Suspect]
     Indication: COLITIS ULCERATIVE
     Route: 042

REACTIONS (9)
  - HYPERSENSITIVITY [None]
  - CARDIOVASCULAR DISORDER [None]
  - INFUSION RELATED REACTION [None]
  - GASTRIC DISORDER [None]
  - VOMITING [None]
  - VISUAL IMPAIRMENT [None]
  - MALAISE [None]
  - FEELING COLD [None]
  - TREMOR [None]
